FAERS Safety Report 9294394 (Version 20)
Quarter: 2015Q3

REPORT INFORMATION
  Report Type: Report from Study
  Country: CA (occurrence: CA)
  Receive Date: 20130517
  Receipt Date: 20150902
  Transmission Date: 20151125
  Serious: Yes (Other)
  Sender: FDA-Public Use
  Company Number: CA-ROCHE-1225300

PATIENT
  Age: 76 Year
  Sex: Female
  Weight: 64 kg

DRUGS (14)
  1. GLYBURIDE. [Concomitant]
     Active Substance: GLYBURIDE
  2. TYLENOL EXTRA STRENGTH [Concomitant]
     Active Substance: ACETAMINOPHEN
  3. PRADAX [Concomitant]
     Active Substance: DABIGATRAN ETEXILATE MESYLATE
  4. ACTEMRA [Suspect]
     Active Substance: TOCILIZUMAB
     Route: 042
     Dates: start: 20131017
  5. METFORMIN [Concomitant]
     Active Substance: METFORMIN HYDROCHLORIDE
  6. PANTOLOC [Concomitant]
     Active Substance: PANTOPRAZOLE SODIUM
  7. DULOXETINE. [Concomitant]
     Active Substance: DULOXETINE
  8. ACTEMRA [Suspect]
     Active Substance: TOCILIZUMAB
     Dosage: DOSE INCREASED
     Route: 042
     Dates: start: 20130418
  9. AVALIDE [Concomitant]
     Active Substance: HYDROCHLOROTHIAZIDE\IRBESARTAN
  10. FUROSEMIDE. [Concomitant]
     Active Substance: FUROSEMIDE
  11. LANTUS [Concomitant]
     Active Substance: INSULIN GLARGINE
  12. SENOKOT [Concomitant]
     Active Substance: SENNOSIDES
  13. PANTOPRAZOLE [Concomitant]
     Active Substance: PANTOPRAZOLE SODIUM
  14. ACTEMRA [Suspect]
     Active Substance: TOCILIZUMAB
     Indication: RHEUMATOID ARTHRITIS
     Dosage: MOST RECENT TOCILIZUMAB DOSE: 19/MAR/2014
     Route: 042
     Dates: start: 20120412

REACTIONS (17)
  - Cystitis [Unknown]
  - Abscess limb [Recovering/Resolving]
  - Drug ineffective [Unknown]
  - Hyperkeratosis [Not Recovered/Not Resolved]
  - Weight decreased [Unknown]
  - Peripheral arterial occlusive disease [Unknown]
  - Blister [Unknown]
  - Blood pressure increased [Unknown]
  - Oxygen saturation decreased [Unknown]
  - Hip fracture [Not Recovered/Not Resolved]
  - Weight increased [Unknown]
  - Skin haemorrhage [Not Recovered/Not Resolved]
  - Infusion related reaction [Unknown]
  - Heart rate increased [Unknown]
  - Skin ulcer [Recovering/Resolving]
  - Nasopharyngitis [Unknown]
  - Fall [Unknown]

NARRATIVE: CASE EVENT DATE: 20130511
